FAERS Safety Report 8428897-9 (Version None)
Quarter: 2012Q2

REPORT INFORMATION
  Report Type: 
  Country: None (occurrence: None)
  Receive Date: 20120605
  Receipt Date: 20120530
  Transmission Date: 20120825
  Serious: Yes (Hospitalization)
  Sender: FDA-Public Use
  Company Number: C-12-033

PATIENT
  Age: 58 Year
  Sex: Female

DRUGS (3)
  1. PHENTERMINE HCL [Suspect]
     Indication: WEIGHT DECREASED
     Dosage: 37.5MG-QAM-PO
     Route: 048
     Dates: start: 20120528, end: 20120528
  2. XOLAIR [Concomitant]
  3. ALBUTEROL [Concomitant]

REACTIONS (1)
  - ANAPHYLACTIC REACTION [None]
